FAERS Safety Report 13185633 (Version 1)
Quarter: 2017Q1

REPORT INFORMATION
  Report Type: Spontaneous
  Country: US (occurrence: US)
  Receive Date: 20170203
  Receipt Date: 20170203
  Transmission Date: 20170428
  Serious: No
  Sender: FDA-Public Use
  Company Number: US-ELI_LILLY_AND_COMPANY-US201702000970

PATIENT
  Sex: Male

DRUGS (5)
  1. CALCIUM [Concomitant]
     Active Substance: CALCIUM
  2. FORTEO [Suspect]
     Active Substance: TERIPARATIDE
     Indication: HIP FRACTURE
     Dosage: UNK, UNKNOWN
     Route: 065
     Dates: start: 201610, end: 20161207
  3. VITAMIN D                          /00107901/ [Concomitant]
     Active Substance: ERGOCALCIFEROL
  4. FORTEO [Suspect]
     Active Substance: TERIPARATIDE
     Indication: RADIUS FRACTURE
  5. FORTEO [Suspect]
     Active Substance: TERIPARATIDE
     Indication: BONE DENSITY DECREASED

REACTIONS (1)
  - Maculopathy [Not Recovered/Not Resolved]
